FAERS Safety Report 20642731 (Version 1)
Quarter: 2022Q1

REPORT INFORMATION
  Report Type: Spontaneous
  Country: US (occurrence: None)
  Receive Date: 20220325
  Receipt Date: 20220325
  Transmission Date: 20220423
  Serious: Yes (unspecified)
  Sender: FDA-Public Use
  Company Number: None

PATIENT
  Age: 76 Year
  Sex: Female
  Weight: 78.75 kg

DRUGS (4)
  1. PAXLOVID [Suspect]
     Active Substance: NIRMATRELVIR\RITONAVIR
     Indication: COVID-19
     Dosage: FREQUENCY : TWICE A DAY;?
     Route: 048
     Dates: start: 20220317, end: 20220317
  2. BIOTIN [Concomitant]
     Active Substance: BIOTIN
  3. Multivitamin tablet [Concomitant]
  4. VITAMIN E [Concomitant]
     Active Substance: .ALPHA.-TOCOPHEROL

REACTIONS (6)
  - Blood pressure increased [None]
  - Dysgeusia [None]
  - Headache [None]
  - Anxiety [None]
  - Dizziness [None]
  - Diarrhoea [None]

NARRATIVE: CASE EVENT DATE: 20220317
